FAERS Safety Report 8189961-5 (Version None)
Quarter: 2012Q1

REPORT INFORMATION
  Report Type: 
  Country: None (occurrence: None)
  Receive Date: 20120307
  Receipt Date: 20120301
  Transmission Date: 20120608
  Serious: Yes (Death)
  Sender: FDA-Public Use
  Company Number: JP-ASTELLAS-2012JP001686

PATIENT
  Age: 62 Year
  Sex: Female

DRUGS (6)
  1. PROGRAF [Suspect]
     Indication: PROPHYLAXIS AGAINST GRAFT VERSUS HOST DISEASE
     Route: 065
  2. ANTI-THYMOCYTE GLOBULIN NOS [Concomitant]
     Route: 065
  3. FLUDARABINE PHOSPHATE [Concomitant]
     Route: 065
  4. BUSULFAN [Concomitant]
     Route: 065
  5. VORICONAZOLE [Concomitant]
     Dosage: 400 MG, UNKNOWN/D
     Route: 065
  6. METHYLPREDNISOLONE [Concomitant]
     Indication: PROPHYLAXIS AGAINST GRAFT VERSUS HOST DISEASE
     Route: 065

REACTIONS (1)
  - ZYGOMYCOSIS [None]
